FAERS Safety Report 9735184 (Version 2)
Quarter: 2014Q2

REPORT INFORMATION
  Report Type: Spontaneous
  Country: US (occurrence: US)
  Receive Date: 20131206
  Receipt Date: 20140407
  Transmission Date: 20141212
  Serious: Yes (Death, Hospitalization, Disabling, Other)
  Sender: FDA-Public Use
  Company Number: US-009507513-1312USA002303

PATIENT
  Sex: Female
  Weight: 40.82 kg

DRUGS (3)
  1. JANUMET [Suspect]
     Indication: TYPE 2 DIABETES MELLITUS
     Dosage: 50-1000 MG, BID
     Route: 048
     Dates: start: 20101201, end: 201112
  2. GLUCOPHAGE [Concomitant]
     Indication: TYPE 2 DIABETES MELLITUS
  3. CITALOPRAM [Concomitant]
     Indication: DEPRESSION
     Dosage: UNK
     Dates: end: 20110926

REACTIONS (21)
  - Pancreatic carcinoma metastatic [Fatal]
  - Metastases to liver [Unknown]
  - Metastases to lung [Unknown]
  - Intestinal obstruction [Unknown]
  - Urinary tract infection [Unknown]
  - Gastroenteritis [Recovering/Resolving]
  - Pancreatitis [Unknown]
  - Inappropriate antidiuretic hormone secretion [Unknown]
  - Inappropriate antidiuretic hormone secretion [Unknown]
  - Dehydration [Unknown]
  - Hypokalaemia [Unknown]
  - Hypomagnesaemia [Unknown]
  - Anaemia [Recovered/Resolved]
  - Decreased appetite [Unknown]
  - Thrombocytopenia [Unknown]
  - Hypertension [Unknown]
  - Hypothyroidism [Unknown]
  - Dyslipidaemia [Unknown]
  - Dementia [Unknown]
  - Insulin-requiring type 2 diabetes mellitus [Unknown]
  - Constipation [Unknown]
